FAERS Safety Report 5673149-3 (Version None)
Quarter: 2008Q1

REPORT INFORMATION
  Report Type: 
  Country: None (occurrence: None)
  Receive Date: 20080319
  Receipt Date: 20080313
  Transmission Date: 20080703
  Serious: Yes (Life-Threatening)
  Sender: FDA-Public Use
  Company Number: AU-BRISTOL-MYERS SQUIBB COMPANY-14115315

PATIENT
  Age: 29 Year
  Sex: Female

DRUGS (5)
  1. AMIKACIN SULFATE [Suspect]
     Indication: INFECTION
     Route: 042
     Dates: start: 20060413, end: 20060413
  2. MERREM [Concomitant]
     Route: 042
     Dates: start: 20060413
  3. SPORANOX [Concomitant]
     Route: 048
  4. PARIET [Concomitant]
     Route: 048
  5. RESPRIM FORTE [Concomitant]
     Route: 048

REACTIONS (7)
  - ABDOMINAL PAIN UPPER [None]
  - DIZZINESS [None]
  - DYSPNOEA [None]
  - HYPERSENSITIVITY [None]
  - HYPOTENSION [None]
  - OXYGEN SATURATION DECREASED [None]
  - PARAESTHESIA [None]
